FAERS Safety Report 4353684-0 (Version None)
Quarter: 2004Q2

REPORT INFORMATION
  Report Type: 
  Country: None (occurrence: None)
  Receive Date: 20040430
  Receipt Date: 20040416
  Transmission Date: 20050107
  Serious: Yes (Other)
  Sender: FDA-Public Use
  Company Number: 2002-04997

PATIENT
  Age: 51 Year
  Sex: Female

DRUGS (7)
  1. TENOFOVIR DISOPROXIL FUMARATE (TENOFOVIR DISOPROXIL FUMARATE) (TABLET) [Suspect]
     Indication: HIV INFECTION
     Dosage: 300 MG, ONCE A DAY, ORAL
     Route: 048
     Dates: start: 20020808, end: 20021017
  2. ATAZANAVIR (ATAZANAVIR) [Suspect]
     Indication: HIV INFECTION
     Dosage: 400 MG, ONCE A DAY, ORAL
     Route: 048
     Dates: start: 20020725, end: 20021017
  3. DIDANOSINE (DIDANOSINE) [Suspect]
     Indication: HIV INFECTION
     Dosage: 400 MG, ONCE A DAY, ORAL
     Route: 048
     Dates: start: 20020102, end: 20020807
  4. DIDANOSINE (DIDANOSINE) [Suspect]
     Indication: HIV INFECTION
     Dosage: 400 MG, ONCE A DAY, ORAL
     Route: 048
     Dates: start: 20020808, end: 20021017
  5. SAQUINAVIR [Suspect]
     Indication: HIV INFECTION
     Dosage: 1200 MG, ONCE A DAY, ORAL
     Route: 048
     Dates: start: 20020725, end: 20021017
  6. CALCIUM CARBONATE [Concomitant]
  7. METOCLOPRAMIDE [Concomitant]

REACTIONS (13)
  - ABDOMINAL PAIN UPPER [None]
  - ALANINE AMINOTRANSFERASE INCREASED [None]
  - ASPARTATE AMINOTRANSFERASE INCREASED [None]
  - BLOOD AMYLASE INCREASED [None]
  - BLOOD BILIRUBIN INCREASED [None]
  - BLOOD CALCIUM INCREASED [None]
  - BLOOD PH INCREASED [None]
  - FATIGUE [None]
  - FLATULENCE [None]
  - HYPERLACTACIDAEMIA [None]
  - LIPASE INCREASED [None]
  - NAUSEA [None]
  - PCO2 DECREASED [None]
